FAERS Safety Report 12650733 (Version 1)
Quarter: 2016Q3

REPORT INFORMATION
  Report Type: Spontaneous
  Country: US (occurrence: US)
  Receive Date: 20160815
  Receipt Date: 20160815
  Transmission Date: 20161109
  Serious: No
  Sender: FDA-Public Use
  Company Number: US-JAZZ-2016-US-004737

PATIENT
  Sex: Male

DRUGS (11)
  1. ADVIL [Concomitant]
     Active Substance: IBUPROFEN
  2. TEGRETOL [Concomitant]
     Active Substance: CARBAMAZEPINE
  3. XYREM [Suspect]
     Active Substance: SODIUM OXYBATE
     Dosage: 4.5 G, BID
     Route: 048
     Dates: start: 200905
  4. NUVIGIL [Concomitant]
     Active Substance: ARMODAFINIL
  5. CLARITIN [Concomitant]
     Active Substance: LORATADINE
  6. PROVIGIL [Concomitant]
     Active Substance: MODAFINIL
  7. AMBIEN [Concomitant]
     Active Substance: ZOLPIDEM TARTRATE
  8. CITALOPRAM [Concomitant]
     Active Substance: CITALOPRAM HYDROBROMIDE
  9. XYREM [Suspect]
     Active Substance: SODIUM OXYBATE
     Dosage: DOSE ADJUSTMENTS
     Route: 048
  10. XYREM [Suspect]
     Active Substance: SODIUM OXYBATE
     Indication: NARCOLEPSY
     Dosage: 2.25 G, BID
     Route: 048
     Dates: start: 200904, end: 200904
  11. TRAZODONE [Concomitant]
     Active Substance: TRAZODONE HYDROCHLORIDE

REACTIONS (1)
  - Wrong technique in product usage process [Unknown]
